FAERS Safety Report 11391088 (Version 2)
Quarter: 2015Q4

REPORT INFORMATION
  Report Type: Spontaneous
  Country: US (occurrence: US)
  Receive Date: 20150818
  Receipt Date: 20151106
  Transmission Date: 20160304
  Serious: Yes (Other)
  Sender: FDA-Public Use
  Company Number: US-ASTRAZENECA-2015SE78295

PATIENT
  Age: 34 Year
  Sex: Male
  Weight: 108.9 kg

DRUGS (4)
  1. NEXIUM [Suspect]
     Active Substance: ESOMEPRAZOLE MAGNESIUM
     Indication: GASTROOESOPHAGEAL REFLUX DISEASE
     Route: 048
     Dates: start: 2008, end: 201506
  2. FLECAINIDE [Concomitant]
     Active Substance: FLECAINIDE
     Indication: HEART RATE IRREGULAR
     Dosage: TWICE A DAY
     Dates: start: 2014
  3. BYSTOLIC [Concomitant]
     Active Substance: NEBIVOLOL HYDROCHLORIDE
     Indication: HEART RATE IRREGULAR
     Dates: start: 2014
  4. ZOLOFT [Concomitant]
     Active Substance: SERTRALINE HYDROCHLORIDE
     Indication: ANXIETY
     Dates: start: 2015

REACTIONS (5)
  - Abdominal pain upper [Unknown]
  - Heart rate irregular [Unknown]
  - Tumour pain [Unknown]
  - Chest pain [Unknown]
  - Gastric polyps [Unknown]

NARRATIVE: CASE EVENT DATE: 2014
